FAERS Safety Report 26077315 (Version 1)
Quarter: 2025Q4

REPORT INFORMATION
  Report Type: Spontaneous
  Country: US (occurrence: US)
  Receive Date: 20251121
  Receipt Date: 20251121
  Transmission Date: 20260117
  Serious: No
  Sender: MERCK SHARP & DOHME LLC
  Company Number: US-009507513-2345129

PATIENT
  Sex: Male

DRUGS (13)
  1. PEMBROLIZUMAB [Suspect]
     Active Substance: PEMBROLIZUMAB
     Indication: Renal cancer
  2. LENVATINIB [Suspect]
     Active Substance: LENVATINIB
     Indication: Renal cell carcinoma
     Route: 048
  3. AMLODIPINE [Concomitant]
     Active Substance: AMLODIPINE BESYLATE
  4. ASPIRIN [Concomitant]
     Active Substance: ASPIRIN
  5. CALCIUM [Concomitant]
     Active Substance: CALCIUM
  6. ELIQUIS [Suspect]
     Active Substance: APIXABAN
  7. FENTANYL [Concomitant]
     Active Substance: FENTANYL
  8. HYDROMORPHONE [Concomitant]
     Active Substance: HYDROMORPHONE
  9. METOPROLOL [Concomitant]
     Active Substance: METOPROLOL
  10. PREDNISONE [Concomitant]
     Active Substance: PREDNISONE
  11. TAMSULOSIN [Concomitant]
     Active Substance: TAMSULOSIN
  12. VITAMIN B12 [Concomitant]
     Active Substance: CYANOCOBALAMIN
  13. Vitamin  D3 [Concomitant]

REACTIONS (3)
  - Myalgia [Not Recovered/Not Resolved]
  - Weight increased [Not Recovered/Not Resolved]
  - Contusion [Not Recovered/Not Resolved]
